FAERS Safety Report 11391886 (Version 1)
Quarter: 2015Q3

REPORT INFORMATION
  Report Type: Spontaneous
  Country: US (occurrence: US)
  Receive Date: 20150818
  Receipt Date: 20150818
  Transmission Date: 20151125
  Serious: Yes (Hospitalization)
  Sender: FDA-Public Use
  Company Number: US-ABBVIE-15P-163-1442626-00

PATIENT
  Sex: Female

DRUGS (1)
  1. CREON [Suspect]
     Active Substance: PANCRELIPASE AMYLASE\PANCRELIPASE LIPASE\PANCRELIPASE PROTEASE
     Indication: PRODUCT USED FOR UNKNOWN INDICATION
     Route: 065

REACTIONS (19)
  - Food intolerance [Unknown]
  - Abdominal pain upper [Unknown]
  - General physical health deterioration [Unknown]
  - Fatigue [Unknown]
  - Weight decreased [Unknown]
  - Lung disorder [Unknown]
  - Dyspnoea [Unknown]
  - Malnutrition [Unknown]
  - Anxiety [Unknown]
  - Loss of consciousness [Unknown]
  - Pulmonary pain [Unknown]
  - Hospitalisation [Unknown]
  - Visual impairment [Unknown]
  - Vomiting [Unknown]
  - Dizziness [Unknown]
  - Dehydration [Unknown]
  - Lung infection pseudomonal [Not Recovered/Not Resolved]
  - Lung infection [Unknown]
  - Chest discomfort [Unknown]
